FAERS Safety Report 8615693-2 (Version None)
Quarter: 2012Q3

REPORT INFORMATION
  Report Type: 
  Country: None (occurrence: None)
  Receive Date: 20120823
  Receipt Date: 20120816
  Transmission Date: 20120928
  Serious: Yes (Hospitalization, Other)
  Sender: FDA-Public Use
  Company Number: DE-ELI_LILLY_AND_COMPANY-DE201208004825

PATIENT
  Sex: Female

DRUGS (4)
  1. DEKRISTOL [Concomitant]
  2. FORTEO [Suspect]
     Indication: OSTEOPOROSIS
     Dosage: UNK
     Route: 058
     Dates: start: 20110809
  3. TOVIAZ [Concomitant]
     Indication: MICTURITION URGENCY
     Dosage: UNK
     Dates: start: 20120101
  4. STALEVO 100 [Concomitant]
     Indication: PARKINSON'S DISEASE

REACTIONS (5)
  - FATIGUE [None]
  - HEAD INJURY [None]
  - TREMOR [None]
  - INJURY [None]
  - FALL [None]
